FAERS Safety Report 8254852-8 (Version None)
Quarter: 2012Q2

REPORT INFORMATION
  Report Type: 
  Country: None (occurrence: None)
  Receive Date: 20120403
  Receipt Date: 20120330
  Transmission Date: 20120825
  Serious: Yes (Death, Hospitalization, Other)
  Sender: FDA-Public Use
  Company Number: PHHY2011TH099449

PATIENT
  Sex: Male

DRUGS (2)
  1. GLEEVEC [Suspect]
     Indication: CHRONIC MYELOID LEUKAEMIA
     Dosage: 600 MG, UNK
     Route: 048
  2. GLEEVEC [Suspect]
     Dosage: 300 MG, UNK
     Route: 048

REACTIONS (5)
  - DEATH [None]
  - PLATELET COUNT DECREASED [None]
  - HAEMORRHAGE [None]
  - PULMONARY OEDEMA [None]
  - SEPSIS [None]
